FAERS Safety Report 6496545-3 (Version None)
Quarter: 2009Q4

REPORT INFORMATION
  Report Type: 
  Country: None (occurrence: None)
  Receive Date: 20091210
  Receipt Date: 20091127
  Transmission Date: 20100525
  Serious: Yes (Life-Threatening, Hospitalization)
  Sender: FDA-Public Use
  Company Number: 09-PDX10-01000

PATIENT
  Age: 59 Year
  Sex: Male
  Weight: 82 kg

DRUGS (1)
  1. PRALATREXATE [Suspect]
     Indication: NON-SMALL CELL LUNG CANCER
     Dosage: 190 MG/M2 (190 MG/M2,1 IN 2 WK),IV
     Route: 042
     Dates: start: 20090227, end: 20090630

REACTIONS (4)
  - DIARRHOEA [None]
  - HERPES SIMPLEX SEROLOGY POSITIVE [None]
  - NEUTROPENIA [None]
  - STOMATITIS [None]
